FAERS Safety Report 8875240 (Version 1)
Quarter: 2012Q4

REPORT INFORMATION
  Report Type: 
  Country: US (occurrence: US)
  Receive Date: 20121029
  Receipt Date: 20121029
  Transmission Date: 20130627
  Serious: Yes (Death, Hospitalization)
  Sender: FDA-Public Use
  Company Number: US-GILEAD-2012-0063611

PATIENT
  Sex: Female

DRUGS (4)
  1. LETAIRIS [Suspect]
     Indication: PULMONARY ARTERIAL HYPERTENSION
     Dosage: 10 mg, QD
     Route: 048
     Dates: start: 20120116
  2. EPOPROSTENOL [Concomitant]
  3. VENTAVIS [Concomitant]
  4. REVATIO [Concomitant]

REACTIONS (3)
  - Death [Fatal]
  - Condition aggravated [Unknown]
  - Therapy regimen changed [Unknown]
